FAERS Safety Report 4530195-0 (Version None)
Quarter: 2004Q4

REPORT INFORMATION
  Report Type: 
  Country: None (occurrence: None)
  Receive Date: 20041217
  Receipt Date: 20041207
  Transmission Date: 20050328
  Serious: Yes (Other)
  Sender: FDA-Public Use
  Company Number: 200421955GDDC

PATIENT
  Age: 66 Year
  Sex: Female
  Weight: 60 kg

DRUGS (2)
  1. NASACORT [Suspect]
     Indication: NASAL DISORDER
     Dosage: DOSE: 1 PUFF
     Route: 045
     Dates: start: 20041005, end: 20041008
  2. COSMOFER [Concomitant]
     Dosage: DOSE: UNK
     Route: 048

REACTIONS (2)
  - HALLUCINATION [None]
  - VISUAL DISTURBANCE [None]
